FAERS Safety Report 13838081 (Version 1)
Quarter: 2017Q3

REPORT INFORMATION
  Report Type: Spontaneous
  Country: US (occurrence: US)
  Receive Date: 20170807
  Receipt Date: 20170807
  Transmission Date: 20171127
  Serious: Yes (Other)
  Sender: FDA-Public Use
  Company Number: US-STRIDES ARCOLAB LIMITED-2017SP011244

PATIENT

DRUGS (2)
  1. IBUPROFEN. [Suspect]
     Active Substance: IBUPROFEN
     Indication: DYSMENORRHOEA
     Dosage: UNK, UNKNOWN
     Route: 065
  2. NAPROXEN. [Suspect]
     Active Substance: NAPROXEN
     Indication: DYSMENORRHOEA
     Dosage: UNK, UNKNOWN
     Route: 065

REACTIONS (9)
  - Fixed eruption [Recovered/Resolved]
  - Skin plaque [Recovered/Resolved]
  - Macule [Recovered/Resolved]
  - Scab [Recovered/Resolved]
  - Nasal mucosal erosion [Recovered/Resolved]
  - Papule [Recovered/Resolved]
  - Skin hyperpigmentation [Recovered/Resolved]
  - Oral mucosa erosion [Recovered/Resolved]
  - Off label use [Unknown]
